FAERS Safety Report 9644144 (Version 2)
Quarter: 2013Q4

REPORT INFORMATION
  Report Type: Spontaneous
  Country: US (occurrence: US)
  Receive Date: 20131024
  Receipt Date: 20131104
  Transmission Date: 20140711
  Serious: No
  Sender: FDA-Public Use
  Company Number: US-009507513-1310USA008482

PATIENT
  Age: 74 Year
  Sex: Male

DRUGS (10)
  1. TICE BCG LIVE [Suspect]
     Indication: BLADDER CANCER
     Dosage: 50 CC, UNSPECIFIED
     Route: 043
     Dates: start: 20131002, end: 20131002
  2. ASPIRIN [Concomitant]
  3. CRESTOR [Concomitant]
  4. ALEVE [Concomitant]
  5. ALIGN [Concomitant]
  6. ATENOLOL [Concomitant]
  7. FUROSEMIDE [Concomitant]
     Route: 048
  8. NYSTATIN [Concomitant]
  9. PANTOPRAZOLE [Concomitant]
  10. XANAX [Concomitant]

REACTIONS (1)
  - Urinary tract infection [Not Recovered/Not Resolved]
